FAERS Safety Report 24741313 (Version 2)
Quarter: 2025Q1

REPORT INFORMATION
  Report Type: Report from Study
  Country: US (occurrence: US)
  Receive Date: 20241217
  Receipt Date: 20250206
  Transmission Date: 20250408
  Serious: Yes (Hospitalization, Other)
  Sender: ABBVIE
  Company Number: US-ABBVIE-5995048

PATIENT
  Age: 70 Year
  Sex: Female
  Weight: 78.925 kg

DRUGS (6)
  1. HUMIRA [Suspect]
     Active Substance: ADALIMUMAB
     Indication: Osteoarthritis
     Dosage: CITRATE FREE
     Route: 058
     Dates: start: 2022, end: 20240922
  2. HUMIRA [Suspect]
     Active Substance: ADALIMUMAB
     Indication: Rheumatoid arthritis
     Dosage: CITRATE FREE
     Route: 058
     Dates: start: 20241110
  3. METFORMIN [Suspect]
     Active Substance: METFORMIN HYDROCHLORIDE
     Indication: Diabetes mellitus
     Dosage: 1000 MG TWO TIMES A DAY
     Route: 048
  4. MELOXICAM [Concomitant]
     Active Substance: MELOXICAM
     Indication: Pain
     Route: 048
  5. ATORVASTATIN [Concomitant]
     Active Substance: ATORVASTATIN
     Indication: Blood cholesterol
  6. CREON [Suspect]
     Active Substance: PANCRELIPASE AMYLASE\PANCRELIPASE LIPASE\PANCRELIPASE PROTEASE
     Indication: Dyspepsia
     Route: 048

REACTIONS (10)
  - Pancreatic mass [Recovering/Resolving]
  - Fatigue [Not Recovered/Not Resolved]
  - Gallbladder disorder [Recovering/Resolving]
  - Haemorrhage [Recovered/Resolved]
  - Tooth injury [Recovered/Resolved]
  - Swollen tongue [Recovered/Resolved]
  - Appendicectomy [Recovering/Resolving]
  - Dyspepsia [Not Recovered/Not Resolved]
  - Diverticulum intestinal haemorrhagic [Recovered/Resolved]
  - Drug interaction [Unknown]

NARRATIVE: CASE EVENT DATE: 20240101
